FAERS Safety Report 5365506-X (Version None)
Quarter: 2007Q2

REPORT INFORMATION
  Report Type: 
  Country: None (occurrence: None)
  Receive Date: 20070621
  Receipt Date: 20070615
  Transmission Date: 20071010
  Serious: Yes (Life-Threatening, Other)
  Sender: FDA-Public Use
  Company Number: A0643358A

PATIENT
  Age: 10 Year
  Sex: Male

DRUGS (6)
  1. AVANDIA [Suspect]
     Indication: DRUG USE FOR UNKNOWN INDICATION
     Dosage: 4MG PER DAY
     Route: 048
     Dates: start: 20061212
  2. ATACAND [Concomitant]
  3. LORATADINE [Concomitant]
  4. ENALAPRIL [Concomitant]
  5. CONCERTA [Concomitant]
  6. PERIACTIN [Concomitant]

REACTIONS (4)
  - BLOOD GLUCOSE DECREASED [None]
  - BLOOD GLUCOSE FLUCTUATION [None]
  - MEDICATION ERROR [None]
  - STARING [None]
